FAERS Safety Report 6410446-8 (Version None)
Quarter: 2009Q4

REPORT INFORMATION
  Report Type: 
  Country: None (occurrence: None)
  Receive Date: 20091022
  Receipt Date: 20091013
  Transmission Date: 20100525
  Serious: Yes (Hospitalization)
  Sender: FDA-Public Use
  Company Number: US-WATSON-2009-08584

PATIENT
  Age: 70 Year
  Sex: Male

DRUGS (11)
  1. DEXAMETHASONE [Suspect]
     Indication: MULTIPLE MYELOMA
     Dosage: UNK
  2. HEPARIN SODIUM [Suspect]
     Indication: ANTICOAGULANT THERAPY
  3. MELOXICAM (WATSON LABORATORIES) [Suspect]
     Indication: MULTIPLE MYELOMA
  4. MORPHINE SULFATE INJ [Suspect]
     Indication: DRUG USE FOR UNKNOWN INDICATION
     Dosage: UNK
  5. THALIDOMIDE [Suspect]
     Indication: MULTIPLE MYELOMA
  6. PAMIDRONATE DISODIUM [Suspect]
     Indication: DRUG USE FOR UNKNOWN INDICATION
  7. CEFEPIME [Suspect]
     Indication: DRUG USE FOR UNKNOWN INDICATION
  8. VANCOMYCIN [Suspect]
     Indication: DRUG USE FOR UNKNOWN INDICATION
  9. FLUCONAZOLE [Suspect]
     Indication: DRUG USE FOR UNKNOWN INDICATION
  10. ACETAMINOPHEN [Suspect]
     Indication: DRUG USE FOR UNKNOWN INDICATION
  11. ENOXAPARIN SODIUM [Suspect]
     Indication: DRUG USE FOR UNKNOWN INDICATION

REACTIONS (1)
  - ACUTE GENERALISED EXANTHEMATOUS PUSTULOSIS [None]
